FAERS Safety Report 17533959 (Version 1)
Quarter: 2020Q1

REPORT INFORMATION
  Report Type: Report from Study
  Country: US (occurrence: US)
  Receive Date: 20200312
  Receipt Date: 20200312
  Transmission Date: 20200409
  Serious: Yes (Hospitalization)
  Sender: FDA-Public Use
  Company Number: US-PFIZER INC-2020063644

PATIENT
  Age: 54 Year
  Sex: Female
  Weight: 79.5 kg

DRUGS (3)
  1. ERDAFITINIB. [Suspect]
     Active Substance: ERDAFITINIB
     Indication: BREAST CANCER
     Dosage: 5 MG, DAILY
     Route: 048
     Dates: start: 20190926, end: 20200204
  2. PALBOCICLIB [Suspect]
     Active Substance: PALBOCICLIB
     Indication: BREAST CANCER
     Dosage: 125 MG, DAILY
     Route: 048
     Dates: start: 20190926, end: 20200204
  3. FULVESTRANT. [Suspect]
     Active Substance: FULVESTRANT
     Dosage: 500 MG, MONTHLY
     Route: 058
     Dates: start: 20190926, end: 20200204

REACTIONS (2)
  - Hypotension [Recovering/Resolving]
  - Colitis [Recovering/Resolving]

NARRATIVE: CASE EVENT DATE: 20200207
